FAERS Safety Report 20999838 (Version 2)
Quarter: 2022Q3

REPORT INFORMATION
  Report Type: Report from Study
  Country: ES (occurrence: ES)
  Receive Date: 20220623
  Receipt Date: 20220711
  Transmission Date: 20221027
  Serious: Yes (Hospitalization)
  Sender: FDA-Public Use
  Company Number: ES-TAKEDA-2022TUS041946

PATIENT
  Age: 22 Year
  Sex: Male

DRUGS (22)
  1. IDURSULFASE [Suspect]
     Active Substance: IDURSULFASE
     Indication: Mucopolysaccharidosis II
     Dosage: 0.5 MILLIGRAM, 1/WEEK
     Route: 042
     Dates: start: 20070221
  2. IDURSULFASE [Suspect]
     Active Substance: IDURSULFASE
     Dosage: 0.58 MILLIGRAM, 1/WEEK
     Route: 042
     Dates: start: 202109
  3. METHYLPHENIDATE [Concomitant]
     Active Substance: METHYLPHENIDATE
     Indication: Behaviour disorder
     Dosage: UNK
     Route: 048
     Dates: start: 20100303, end: 201102
  4. METHYLPHENIDATE [Concomitant]
     Active Substance: METHYLPHENIDATE
     Indication: Aggression
     Dosage: UNK
     Route: 048
     Dates: start: 201102, end: 20130424
  5. METHYLPHENIDATE [Concomitant]
     Active Substance: METHYLPHENIDATE
     Dosage: UNK
     Route: 048
     Dates: start: 20130424, end: 20140912
  6. METHYLPHENIDATE [Concomitant]
     Active Substance: METHYLPHENIDATE
     Dosage: UNK
     Route: 048
     Dates: start: 202205
  7. BUDESONIDE [Concomitant]
     Active Substance: BUDESONIDE
     Indication: Respiratory disorder
     Dosage: UNK
     Route: 050
     Dates: start: 20150318, end: 201508
  8. BUDESONIDE [Concomitant]
     Active Substance: BUDESONIDE
     Indication: Dyspnoea
     Dosage: UNK
     Route: 050
     Dates: start: 20151014
  9. VITAMIN D [Concomitant]
     Active Substance: VITAMIN D NOS
     Indication: Hypovitaminosis
     Dosage: UNK
     Route: 048
     Dates: start: 20150325
  10. AZITHROMYCIN [Concomitant]
     Active Substance: AZITHROMYCIN
     Indication: Lung disorder
     Dosage: UNK
     Route: 048
     Dates: start: 20150901, end: 20150906
  11. AZITHROMYCIN [Concomitant]
     Active Substance: AZITHROMYCIN
     Indication: Bronchitis
     Dosage: UNK
     Route: 048
     Dates: start: 20160601, end: 20160604
  12. AZITHROMYCIN [Concomitant]
     Active Substance: AZITHROMYCIN
     Indication: Wheezing
     Dosage: UNK
     Route: 048
     Dates: start: 20171207, end: 20171210
  13. AZITHROMYCIN [Concomitant]
     Active Substance: AZITHROMYCIN
     Indication: Cough
     Dosage: UNK
     Route: 048
     Dates: start: 20180314, end: 20180317
  14. AMOXICILLIN [Concomitant]
     Active Substance: AMOXICILLIN
     Indication: Lung disorder
     Dosage: UNK
     Route: 048
     Dates: start: 20150902, end: 20150909
  15. AMOXICILLIN [Concomitant]
     Active Substance: AMOXICILLIN
     Indication: Abscess limb
     Dosage: UNK
     Route: 048
     Dates: start: 20180410, end: 20180417
  16. ALBUTEROL [Concomitant]
     Active Substance: ALBUTEROL
     Indication: Asthma
     Dosage: UNK
     Route: 048
     Dates: start: 20160601, end: 20160604
  17. ALBUTEROL [Concomitant]
     Active Substance: ALBUTEROL
     Indication: Wheezing
     Dosage: UNK
     Route: 050
     Dates: start: 20171207, end: 20171216
  18. ALBUTEROL [Concomitant]
     Active Substance: ALBUTEROL
     Indication: Cough
     Dosage: UNK
     Route: 050
     Dates: start: 20180314, end: 201803
  19. ALBUTEROL [Concomitant]
     Active Substance: ALBUTEROL
     Indication: Bronchitis
  20. CALCIUM CARBONATE [Concomitant]
     Active Substance: CALCIUM CARBONATE
     Dosage: UNK
     Route: 048
     Dates: start: 20180122, end: 20180328
  21. VALERIAN [Concomitant]
     Active Substance: VALERIAN
     Indication: Aggression
     Dosage: UNK
     Route: 065
     Dates: start: 20220207, end: 202203
  22. AZITHREE [Concomitant]
     Indication: Respiratory tract infection
     Dosage: UNK
     Route: 048
     Dates: start: 20220425, end: 20220427

REACTIONS (1)
  - Inguinal hernia [Recovered/Resolved]

NARRATIVE: CASE EVENT DATE: 20220427
